FAERS Safety Report 10405485 (Version 2)
Quarter: 2014Q3

REPORT INFORMATION
  Report Type: Spontaneous
  Country: JP (occurrence: None)
  Receive Date: 20140820
  Receipt Date: 20140905
  Transmission Date: 20150326
  Serious: Yes (Life-Threatening, Hospitalization)
  Sender: FDA-Public Use
  Company Number: JP-20140308

PATIENT
  Age: 76 Year
  Sex: Male

DRUGS (2)
  1. LIPIODOL ULTRA-FLUIDE [Suspect]
     Active Substance: ETHIODIZED OIL
     Indication: THERAPEUTIC EMBOLISATION
     Route: 013
     Dates: start: 20140801, end: 20140801
  2. MIRAPLATIN [Concomitant]

REACTIONS (6)
  - Embolic cerebral infarction [None]
  - Overdose [None]
  - Loss of consciousness [None]
  - Off label use [None]
  - Pulmonary embolism [None]
  - Pneumonia [None]

NARRATIVE: CASE EVENT DATE: 20140801
